FAERS Safety Report 7552741-5 (Version None)
Quarter: 2011Q2

REPORT INFORMATION
  Report Type: 
  Country: None (occurrence: None)
  Receive Date: 20110616
  Receipt Date: 20110607
  Transmission Date: 20111010
  Serious: Yes (Other)
  Sender: FDA-Public Use
  Company Number: JP-PFIZER INC-2011131400

PATIENT
  Age: 72 Year
  Sex: Male
  Weight: 52.5 kg

DRUGS (4)
  1. CASODEX [Concomitant]
     Dosage: UNK
     Route: 048
  2. LAC B [Concomitant]
     Dosage: UNK
     Route: 048
  3. ATORVASTATIN CALCIUM [Suspect]
     Indication: HYPERCHOLESTEROLAEMIA
     Dosage: 10 MG, 1X/DAY
     Route: 048
     Dates: start: 20101214, end: 20110120
  4. ZETIA [Concomitant]
     Dosage: UNK

REACTIONS (1)
  - GENERALISED OEDEMA [None]
